FAERS Safety Report 12314956 (Version 3)
Quarter: 2016Q2

REPORT INFORMATION
  Report Type: Spontaneous
  Country: JP (occurrence: JP)
  Receive Date: 20160428
  Receipt Date: 20160516
  Transmission Date: 20160815
  Serious: Yes (Other)
  Sender: FDA-Public Use
  Company Number: JP-MALLINCKRODT-T201601377

PATIENT
  Age: 61 Year
  Sex: Male
  Weight: 60 kg

DRUGS (40)
  1. BFLUID [Concomitant]
     Active Substance: AMINO ACIDS\DEXTROSE\ELECTROLYTES NOS\VITAMINS
     Indication: EATING DISORDER
     Dosage: UNK
     Route: 042
     Dates: start: 20160202, end: 20160221
  2. HUMULIN R [Concomitant]
     Active Substance: INSULIN HUMAN
     Dosage: UNK
     Route: 042
     Dates: start: 20160202, end: 20160221
  3. DIPRIVAN [Concomitant]
     Active Substance: PROPOFOL
     Dosage: UNK
     Route: 042
     Dates: start: 20160317, end: 20160317
  4. HUMAN SERUM ALBUMIN [Concomitant]
     Active Substance: ALBUMIN HUMAN
     Dosage: 50 ML
     Route: 042
     Dates: start: 20160318, end: 20160320
  5. OFIRMEV [Suspect]
     Active Substance: ACETAMINOPHEN
     Indication: ANALGESIC THERAPY
     Dosage: 1000 MG
     Route: 042
     Dates: start: 20160222, end: 20160222
  6. CALONAL [Concomitant]
     Active Substance: ACETAMINOPHEN
     Indication: ANALGESIC THERAPY
     Dosage: 1000 MG
     Route: 048
     Dates: start: 20160128, end: 20160411
  7. LANSOPRAZOLE. [Concomitant]
     Active Substance: LANSOPRAZOLE
     Indication: PEPTIC ULCER
     Dosage: 30 MG
     Route: 042
     Dates: start: 20160131, end: 20160324
  8. NAUZELIN [Concomitant]
     Active Substance: DOMPERIDONE
     Indication: NAUSEA
     Dosage: 30 MG
     Route: 065
     Dates: start: 20160225
  9. EURODIN [Concomitant]
     Active Substance: ESTAZOLAM
     Indication: INSOMNIA
     Dosage: 2 MG
     Route: 048
  10. BFLUID [Concomitant]
     Active Substance: AMINO ACIDS\DEXTROSE\ELECTROLYTES NOS\VITAMINS
     Dosage: UNK
     Route: 042
     Dates: start: 20160318, end: 20160320
  11. ULTIVA [Concomitant]
     Active Substance: REMIFENTANIL HYDROCHLORIDE
     Dosage: UNK
     Dates: start: 20160317, end: 20160317
  12. FENTANYL CITRATE. [Concomitant]
     Active Substance: FENTANYL CITRATE
     Dosage: UNK
     Route: 042
     Dates: start: 20160317, end: 20160317
  13. HUMAN SERUM ALBUMIN [Concomitant]
     Active Substance: ALBUMIN HUMAN
     Dosage: 50 ML
     Route: 042
     Dates: start: 20160221, end: 20160225
  14. LYRICA [Concomitant]
     Active Substance: PREGABALIN
     Indication: ANALGESIC THERAPY
     Dosage: 150 MG
     Route: 048
  15. SELBEX [Concomitant]
     Active Substance: TEPRENONE
     Indication: PROPHYLAXIS AGAINST GASTROINTESTINAL ULCER
     Dosage: 150 MG
     Route: 048
     Dates: start: 20160223, end: 20160307
  16. SENNOSIDE [Concomitant]
     Active Substance: SENNOSIDES
     Indication: CONSTIPATION
     Dosage: 48 MG
     Route: 048
  17. GASTER [Concomitant]
     Active Substance: FAMOTIDINE
     Dosage: UNK
     Route: 042
     Dates: start: 20160202, end: 20160221
  18. HUMULIN R [Concomitant]
     Active Substance: INSULIN HUMAN
     Dosage: UNK
     Route: 042
     Dates: start: 20160224, end: 20160225
  19. ULTIVA [Concomitant]
     Active Substance: REMIFENTANIL HYDROCHLORIDE
     Dosage: UNK
     Route: 042
     Dates: start: 20160222, end: 20160222
  20. FENTANYL CITRATE. [Concomitant]
     Active Substance: FENTANYL CITRATE
     Dosage: UNK
     Route: 042
     Dates: start: 20160222, end: 20160222
  21. MAGMITT [Concomitant]
     Active Substance: MAGNESIUM OXIDE
     Indication: CONSTIPATION
     Dosage: 990 MG
     Route: 048
  22. BFLUID [Concomitant]
     Active Substance: AMINO ACIDS\DEXTROSE\ELECTROLYTES NOS\VITAMINS
     Dosage: UNK
     Route: 042
     Dates: start: 20160224, end: 20160225
  23. RED CELLS M_A_P(IRRADIATED) [Concomitant]
     Dosage: 560 ML
     Route: 042
     Dates: start: 20160317, end: 20160317
  24. OFIRMEV [Suspect]
     Active Substance: ACETAMINOPHEN
     Dosage: 1000 MG
     Route: 042
     Dates: start: 20160323, end: 20160324
  25. GASTER [Concomitant]
     Active Substance: FAMOTIDINE
     Dosage: UNK
     Route: 042
     Dates: start: 20160224, end: 20160225
  26. HUMULIN R [Concomitant]
     Active Substance: INSULIN HUMAN
     Dosage: UNK
     Route: 042
     Dates: start: 20160318, end: 20160320
  27. RED CELLS M_A_P(IRRADIATED) [Concomitant]
     Dosage: 560 ML
     Route: 042
     Dates: start: 20160325, end: 20160325
  28. VANCOMYCIN [Concomitant]
     Active Substance: VANCOMYCIN
     Indication: DECUBITUS ULCER
     Dosage: 2 G
     Route: 042
     Dates: start: 20160228
  29. TERIBONE [Concomitant]
     Active Substance: TERIPARATIDE ACETATE
     Indication: OSTEOPOROSIS
     Dosage: 56.5 UG
     Route: 058
     Dates: start: 20160302
  30. DROLEPTAN [Concomitant]
     Active Substance: DROPERIDOL
     Dosage: UNK
     Route: 042
     Dates: start: 20160222, end: 20160222
  31. RED CELLS M_A_P(IRRADIATED) [Concomitant]
     Dosage: 280 ML
     Route: 042
     Dates: start: 20160324, end: 20160324
  32. HUMAN SERUM ALBUMIN [Concomitant]
     Active Substance: ALBUMIN HUMAN
     Dosage: 50 ML
     Route: 042
     Dates: start: 20160127, end: 20160128
  33. HUMAN SERUM ALBUMIN [Concomitant]
     Active Substance: ALBUMIN HUMAN
     Dosage: 50 ML
     Route: 042
     Dates: start: 20160324, end: 20160326
  34. VOLTAREN [Concomitant]
     Active Substance: DICLOFENAC SODIUM
     Indication: PAIN
     Dosage: 25 MG
     Route: 054
     Dates: start: 20160222, end: 20160319
  35. DIPRIVAN [Concomitant]
     Active Substance: PROPOFOL
     Dosage: UNK
     Route: 042
     Dates: start: 20160222, end: 20160222
  36. CELECOX [Concomitant]
     Active Substance: CELECOXIB
     Indication: ANALGESIC THERAPY
     Dosage: 200 MG
     Route: 048
     Dates: start: 20160223
  37. METHYCOBAL [Concomitant]
     Active Substance: METHYLCOBALAMIN
     Indication: ANALGESIC THERAPY
     Dosage: 1500 UG
     Route: 048
  38. GASTER [Concomitant]
     Active Substance: FAMOTIDINE
     Dosage: UNK
     Route: 042
     Dates: start: 20160318, end: 20160320
  39. DROLEPTAN [Concomitant]
     Active Substance: DROPERIDOL
     Dosage: UNK
     Route: 042
     Dates: start: 20160317, end: 20160317
  40. RED CELLS M_A_P(IRRADIATED) [Concomitant]
     Dosage: 840 ML
     Route: 042
     Dates: start: 20160222, end: 20160222

REACTIONS (1)
  - Pancytopenia [Recovered/Resolved]

NARRATIVE: CASE EVENT DATE: 20160324
